FAERS Safety Report 18392786 (Version 2)
Quarter: 2020Q4

REPORT INFORMATION
  Report Type: Spontaneous
  Country: IL (occurrence: IL)
  Receive Date: 20201016
  Receipt Date: 20201021
  Transmission Date: 20210114
  Serious: Yes (Hospitalization)
  Sender: FDA-Public Use
  Company Number: IL-JNJFOC-20201023918

PATIENT
  Age: 88 Year
  Sex: Male

DRUGS (9)
  1. VABEN [Concomitant]
     Active Substance: OXAZEPAM
  2. LITORVA [Concomitant]
     Active Substance: ATORVASTATIN CALCIUM
  3. NORMOPRESAN [Concomitant]
  4. CADEX [IODINE] [Concomitant]
  5. PROCOR [AMIODARONE HYDROCHLORIDE] [Concomitant]
     Active Substance: AMIODARONE HYDROCHLORIDE
  6. XARELTO [Suspect]
     Active Substance: RIVAROXABAN
     Indication: CEREBROVASCULAR ACCIDENT PROPHYLAXIS
     Dosage: 15 MG, QD
     Route: 048
     Dates: start: 2019, end: 202010
  7. CIPRALEX [Concomitant]
     Active Substance: ESCITALOPRAM OXALATE
  8. XARELTO [Suspect]
     Active Substance: RIVAROXABAN
     Indication: ATRIAL FIBRILLATION
     Dosage: 15 MG, QD
     Route: 048
  9. VASODIP [Concomitant]
     Active Substance: LERCANIDIPINE HYDROCHLORIDE

REACTIONS (5)
  - Speech disorder [Recovering/Resolving]
  - Cerebral infarction [Recovering/Resolving]
  - Incorrect dose administered [Unknown]
  - Behaviour disorder [Recovering/Resolving]
  - Asthenia [Recovering/Resolving]

NARRATIVE: CASE EVENT DATE: 202010
